FAERS Safety Report 4803350-X (Version None)
Quarter: 2005Q3

REPORT INFORMATION
  Report Type: 
  Country: None (occurrence: None)
  Receive Date: 20050929
  Receipt Date: 20050802
  Transmission Date: 20060218
  Serious: Yes (Death, Hospitalization)
  Sender: FDA-Public Use
  Company Number: 05P-163-0307344-00

PATIENT
  Age: 68 Year
  Sex: Female
  Weight: 93.8946 kg

DRUGS (15)
  1. HUMIRA [Suspect]
     Indication: RHEUMATOID ARTHRITIS
     Dosage: 40 MG, 1 IN 1 WK, SUBCUTANEOUS
     Route: 058
     Dates: start: 20041019, end: 20050301
  2. FUROSEMIDE [Concomitant]
  3. AMIODARONE HCL [Concomitant]
  4. METOPROLOL SUCCINATE [Concomitant]
  5. PREDNISONE [Concomitant]
  6. METHOTREXATE [Concomitant]
  7. TORSEMIDE [Concomitant]
  8. ACETAZOLAMIDE [Concomitant]
  9. FOLIC ACID [Concomitant]
  10. METOPROLOL TARTRATE [Concomitant]
  11. POTASSIUM CHLORIDE [Concomitant]
  12. DILTIAZEM HYDROCHLORIDE [Concomitant]
  13. INSULIN GLARGINE [Concomitant]
  14. COUMADIN [Concomitant]
  15. CALCITONIN-SALMON [Concomitant]

REACTIONS (2)
  - DEATH [None]
  - PNEUMONIA [None]
